FAERS Safety Report 9292314 (Version 2)
Quarter: 2013Q3

REPORT INFORMATION
  Report Type: Report from Study
  Country: US (occurrence: US)
  Receive Date: 20130516
  Receipt Date: 20130819
  Transmission Date: 20140515
  Serious: Yes (Hospitalization)
  Sender: FDA-Public Use
  Company Number: PHEH2013US010735

PATIENT
  Age: 70 Year
  Sex: Female
  Weight: 93.88 kg

DRUGS (24)
  1. GLEEVEC [Suspect]
     Indication: CHRONIC MYELOID LEUKAEMIA
     Dosage: 400 MG, QD
     Route: 048
     Dates: start: 20130315, end: 20130603
  2. AMITRIPTYLIN [Concomitant]
     Indication: DEPRESSION
     Dosage: UNK UKN, UNK
  3. CYMBALTA [Concomitant]
     Indication: DEPRESSION
     Dosage: 30 MG, DAILY
     Dates: start: 20130706
  4. CALCIUM CARBONATE AND VITAMIN D [Concomitant]
     Dosage: 01 DF, BID
     Route: 048
     Dates: start: 20130306
  5. CLONIDINE HCL [Concomitant]
     Dosage: 01 DF, BID
     Route: 048
  6. FIORICET [Concomitant]
     Dosage: 1-2, DF, PRN
     Route: 048
     Dates: start: 20130320
  7. FORTEO [Concomitant]
     Dosage: 20 UG, QD
     Route: 058
     Dates: start: 20130531
  8. IMODIUM A-D [Concomitant]
     Dosage: 04 MG, UNK
     Route: 048
     Dates: start: 20130402
  9. IMODIUM A-D [Concomitant]
     Dosage: 02 MG, AFTER EVERY STOOL, NOT EXCEED 16 MG IN 24 HRS
     Route: 048
  10. LACTULOSE [Concomitant]
     Dosage: 2-3 SPOON, QD
     Route: 048
     Dates: start: 20110823
  11. MESTINON [Concomitant]
     Dosage: 60 MG, QD
     Route: 048
     Dates: start: 20130312
  12. METOPROLOL [Concomitant]
     Dosage: 1 DF, BID
     Route: 048
  13. MICRO K [Concomitant]
     Dosage: 02 DF, TID
     Route: 048
     Dates: start: 20130430
  14. NITROSTAT [Concomitant]
     Indication: CHEST PAIN
     Dosage: 0.4 MG, PRN
     Route: 060
     Dates: start: 20121102
  15. NYSTATIN [Concomitant]
     Dosage: 100000 UNIT PER GRAM, BID
     Route: 061
     Dates: start: 20111123
  16. OXYCODONE HCL [Concomitant]
     Dosage: 03 DF, TID
     Route: 048
     Dates: start: 20130529
  17. OXYGEN [Concomitant]
     Dosage: 24 HRS, DAILY
     Dates: start: 20110209
  18. PERCOCET [Concomitant]
     Dosage: 01 DF, QID
     Route: 048
     Dates: start: 20130531
  19. PHENERGAN [Concomitant]
     Indication: NAUSEA
     Dosage: 01 DF, EVERY 4 TO 6 HOURS
     Route: 048
  20. PLAQUENIL [Concomitant]
     Dosage: 001 DF, BID
     Route: 048
     Dates: start: 20130221
  21. PREDNISONE [Concomitant]
     Dosage: 15 MG, QD
     Dates: start: 20130312
  22. SYNTHROID [Concomitant]
     Dosage: 1 DF, QD
     Route: 048
     Dates: start: 20120306
  23. XANAX [Concomitant]
     Dosage: 01 DF, QID
     Route: 048
     Dates: start: 20130521
  24. ZOFRAN [Concomitant]
     Dosage: 01 DF, EVERY 4 HOURS
     Dates: start: 20130607

REACTIONS (6)
  - Tremor [Unknown]
  - Fluid retention [Recovering/Resolving]
  - Weight increased [Recovering/Resolving]
  - Constipation [Unknown]
  - Oedema [Unknown]
  - Dysphagia [Unknown]
